FAERS Safety Report 8043401-5 (Version None)
Quarter: 2011Q4

REPORT INFORMATION
  Report Type: 
  Country: None (occurrence: None)
  Receive Date: 20111209
  Receipt Date: 20110909
  Transmission Date: 20120403
  Serious: No
  Sender: FDA-Public Use
  Company Number: TH-2011-00374

PATIENT
  Age: 31 Year
  Sex: Female

DRUGS (9)
  1. VIREAD [Concomitant]
  2. EGRIFTA [Suspect]
     Indication: HIV INFECTION
     Dosage: 1 IN 1 D, SUBCUTANEOUS
     Route: 058
     Dates: start: 20110822, end: 20110907
  3. ACYCLOVIR (ACICLOVIR SODIUM) [Concomitant]
  4. ALBUTEROL SULFATE AUTOHALER [Concomitant]
  5. FLOVENT [Concomitant]
  6. KALETRA [Concomitant]
  7. RETROVIR [Concomitant]
  8. NEURONTIN [Concomitant]
  9. LYRICA [Concomitant]

REACTIONS (9)
  - DYSGEUSIA [None]
  - HYPOAESTHESIA [None]
  - ARTHRALGIA [None]
  - AGEUSIA [None]
  - MYALGIA [None]
  - OEDEMA PERIPHERAL [None]
  - PAIN IN EXTREMITY [None]
  - PHARYNGITIS [None]
  - HYPERSENSITIVITY [None]
